FAERS Safety Report 10140908 (Version 1)
Quarter: 2014Q2

REPORT INFORMATION
  Report Type: Spontaneous
  Country: ES (occurrence: ES)
  Receive Date: 20140429
  Receipt Date: 20140429
  Transmission Date: 20141212
  Serious: Yes (Hospitalization)
  Sender: FDA-Public Use
  Company Number: CHPA2014ES005460

PATIENT
  Age: 38 Year
  Sex: Male

DRUGS (1)
  1. PARACETAMOL [Suspect]
     Dosage: 40 G, ONCE
     Route: 048

REACTIONS (11)
  - Rhabdomyolysis [Recovered/Resolved]
  - Renal injury [Recovered/Resolved]
  - Muscle injury [Recovered/Resolved]
  - Myoglobinuria [Recovered/Resolved]
  - Proteinuria [Recovered/Resolved]
  - Intentional overdose [Recovered/Resolved]
  - Liver injury [Recovered/Resolved]
  - Chest pain [Recovered/Resolved]
  - Confusional state [Recovered/Resolved]
  - Abdominal pain upper [Recovered/Resolved]
  - Nausea [Recovered/Resolved]
